FAERS Safety Report 7768747-7 (Version None)
Quarter: 2011Q3

REPORT INFORMATION
  Report Type: 
  Country: None (occurrence: None)
  Receive Date: 20110922
  Receipt Date: 20110419
  Transmission Date: 20111222
  Serious: No
  Sender: FDA-Public Use
  Company Number: US-ASTRAZENECA-2010SE59508

PATIENT
  Age: 68 Year
  Sex: Female
  Weight: 64.9 kg

DRUGS (6)
  1. SEROQUEL [Suspect]
     Indication: EATING DISORDER
     Route: 048
     Dates: start: 20100101
  2. SEROQUEL [Suspect]
     Route: 048
     Dates: start: 20101101
  3. SEROQUEL [Suspect]
     Route: 048
  4. SEROQUEL [Suspect]
     Indication: DEPRESSION
     Route: 048
     Dates: start: 20100101
  5. SEROQUEL [Suspect]
     Route: 048
     Dates: start: 20101101
  6. SEROQUEL [Suspect]
     Route: 048

REACTIONS (13)
  - FATIGUE [None]
  - DRUG DOSE OMISSION [None]
  - HYPERTENSION [None]
  - INSOMNIA [None]
  - DRUG PRESCRIBING ERROR [None]
  - NAUSEA [None]
  - WEIGHT INCREASED [None]
  - HALLUCINATION, VISUAL [None]
  - DRY MOUTH [None]
  - HYPERSOMNIA [None]
  - HEADACHE [None]
  - MYALGIA [None]
  - HEART RATE INCREASED [None]
